FAERS Safety Report 7813881-6 (Version None)
Quarter: 2011Q4

REPORT INFORMATION
  Report Type: 
  Country: None (occurrence: None)
  Receive Date: 20111011
  Receipt Date: 20110929
  Transmission Date: 20120403
  Serious: Yes (Hospitalization)
  Sender: FDA-Public Use
  Company Number: 2011SP046362

PATIENT
  Age: 28 Year
  Sex: Female

DRUGS (1)
  1. NUVARING [Suspect]
     Indication: CONTRACEPTION

REACTIONS (3)
  - HAEMORRHAGIC INFARCTION [None]
  - NO REACTION ON PREVIOUS EXPOSURE TO DRUG [None]
  - TRANSVERSE SINUS THROMBOSIS [None]
